FAERS Safety Report 7946671-4 (Version None)
Quarter: 2011Q4

REPORT INFORMATION
  Report Type: 
  Country: None (occurrence: None)
  Receive Date: 20111129
  Receipt Date: 20111121
  Transmission Date: 20120403
  Serious: Yes (Hospitalization, Other)
  Sender: FDA-Public Use
  Company Number: BR-ABBOTT-11P-020-0873512-00

PATIENT
  Sex: Female
  Weight: 60 kg

DRUGS (1)
  1. DEPAKENE [Suspect]
     Indication: EPILEPSY
     Route: 048

REACTIONS (4)
  - UTERINE CYST [None]
  - UTERINE ENLARGEMENT [None]
  - UTERINE NEOPLASM [None]
  - ALOPECIA [None]
